FAERS Safety Report 10926811 (Version 1)
Quarter: 2015Q1

REPORT INFORMATION
  Report Type: Spontaneous
  Country: US (occurrence: None)
  Receive Date: 20150209
  Receipt Date: 20150209
  Transmission Date: 20150721
  Serious: Yes (Other)
  Sender: FDA-Public Use
  Company Number: 2014SCPR009436

PATIENT
  Age: 71 Year
  Sex: Female

DRUGS (12)
  1. ULTIMATE 15 PROBIOTICS [Concomitant]
  2. CALCIUM CITRATE [Concomitant]
     Active Substance: CALCIUM CITRATE
  3. IRON [Concomitant]
     Active Substance: IRON
  4. FOLIC ACID. [Concomitant]
     Active Substance: FOLIC ACID
  5. GLUCOSAMINE AND CHONDROITIN (CHONDROITIN SULFATE SODIUM, GLUCOSAMINE) [Concomitant]
  6. VITAMIN C [Concomitant]
     Active Substance: ASCORBIC ACID
  7. BUPROPION HCL XL [Suspect]
     Active Substance: BUPROPION HYDROCHLORIDE
     Indication: DEPRESSION
     Route: 048
     Dates: start: 201404, end: 201406
  8. MSM (METHYSULFONYLMETHANE) [Concomitant]
  9. LOPERAMIDE [Concomitant]
     Active Substance: LOPERAMIDE
  10. POTASSIUM GLUTAMATE [Concomitant]
  11. MELATONIN [Concomitant]
     Active Substance: MELATONIN
  12. COQN [Concomitant]

REACTIONS (3)
  - Drug ineffective [None]
  - Product quality issue [None]
  - Suicidal ideation [None]

NARRATIVE: CASE EVENT DATE: 2014
